FAERS Safety Report 16941456 (Version 1)
Quarter: 2019Q4

REPORT INFORMATION
  Report Type: Spontaneous
  Country: US (occurrence: US)
  Receive Date: 20191021
  Receipt Date: 20191021
  Transmission Date: 20200122
  Serious: Yes (Hospitalization)
  Sender: FDA-Public Use
  Company Number: US-EPIC PHARMA LLC-2019EPC00295

PATIENT
  Age: 65 Year
  Sex: Male

DRUGS (2)
  1. LEUCOVORIN CALCIUM. [Suspect]
     Active Substance: LEUCOVORIN CALCIUM
     Route: 065
  2. 5-FU (FLUOROURACIL) [Concomitant]
     Active Substance: FLUOROURACIL
     Route: 065

REACTIONS (5)
  - Dyskinesia [Recovered/Resolved]
  - Hypersensitivity [Recovered/Resolved]
  - Pain [Recovered/Resolved]
  - Dystonia [Recovered/Resolved]
  - Hypertension [Recovered/Resolved]
